FAERS Safety Report 16894488 (Version 2)
Quarter: 2019Q4

REPORT INFORMATION
  Report Type: Report from Study
  Country: GB (occurrence: GB)
  Receive Date: 20191008
  Receipt Date: 20191014
  Transmission Date: 20200122
  Serious: Yes (Hospitalization)
  Sender: FDA-Public Use
  Company Number: GB-MYLANLABS-2019M1092610

PATIENT
  Age: 75 Year
  Sex: Female

DRUGS (25)
  1. MORPHINE SULPHATE [Concomitant]
     Active Substance: MORPHINE SULFATE
     Indication: SPINAL PAIN
     Dosage: 5 MILLIGRAM, PRN
     Route: 048
     Dates: start: 20160913
  2. MORPHINE SULPHATE [Concomitant]
     Active Substance: MORPHINE SULFATE
     Dosage: 30 MILLIGRAM, QD
     Route: 048
     Dates: start: 20181102
  3. MACROGOL COMP [Concomitant]
     Dosage: 2 UNK, QD, FORM = SACHET
     Route: 048
     Dates: start: 20160913
  4. NERATINIB [Suspect]
     Active Substance: NERATINIB
     Indication: HER-2 POSITIVE BREAST CANCER
     Dosage: 240 MILLIGRAM, QD
     Route: 048
     Dates: start: 20180226, end: 20180227
  5. ZOLEDRONIC ACID [Concomitant]
     Active Substance: ZOLEDRONIC ACID
     Indication: METASTASES TO BONE
     Dosage: 3.5 MILLIGRAM, MONTHLY
     Route: 042
     Dates: start: 20160920
  6. LANSOPRAZOLE. [Concomitant]
     Active Substance: LANSOPRAZOLE
     Indication: PROPHYLAXIS
     Dosage: 30 MILLIGRAM, QD
     Route: 048
     Dates: start: 20181106
  7. TRASTUZUMAB. [Suspect]
     Active Substance: TRASTUZUMAB
     Indication: HER-2 POSITIVE BREAST CANCER
     Dosage: 600 MILLIGRAM, Q3W
     Route: 058
     Dates: start: 20161013, end: 20180130
  8. DEXAMETHASONE. [Concomitant]
     Active Substance: DEXAMETHASONE
     Indication: SPINAL PAIN
     Dosage: 4 MILLIGRAM, QD
     Route: 048
     Dates: start: 20181102, end: 20181108
  9. DOCUSATE SODIUM. [Concomitant]
     Active Substance: DOCUSATE SODIUM
     Indication: CONSTIPATION
     Dosage: 400 MILLIGRAM, QD
     Route: 048
     Dates: start: 20181102
  10. HALOPERIDOL. [Concomitant]
     Active Substance: HALOPERIDOL
     Indication: SPINAL PAIN
     Dosage: 3 MILLIGRAM, QD
     Route: 048
     Dates: start: 20181102, end: 20181108
  11. NAPROXEN. [Concomitant]
     Active Substance: NAPROXEN
     Dosage: 500 MILLIGRAM, QD
     Route: 048
     Dates: start: 20160902
  12. LEVOMEPROMAZINE [Concomitant]
     Active Substance: LEVOMEPROMAZINE
     Indication: VOMITING
     Dosage: 3 MILLIGRAM, QD
     Route: 048
     Dates: start: 20181029, end: 20181030
  13. DOMPERIDONE [Concomitant]
     Active Substance: DOMPERIDONE
     Indication: NAUSEA
     Dosage: 30 MILLIGRAM, QD
     Route: 048
     Dates: start: 20181108
  14. ZOLEDRONIC ACID [Concomitant]
     Active Substance: ZOLEDRONIC ACID
     Indication: BONE PAIN
     Dosage: UNK
  15. LEVOTHYROXINE. [Concomitant]
     Active Substance: LEVOTHYROXINE
     Dosage: 175 MILLIGRAM, QD
     Route: 048
     Dates: start: 20030924
  16. PACLITAXEL. [Suspect]
     Active Substance: PACLITAXEL
     Indication: HER-2 POSITIVE BREAST CANCER
     Dosage: 162 MILLIGRAM
     Route: 042
     Dates: start: 20180921, end: 20181025
  17. GABAPENTIN. [Concomitant]
     Active Substance: GABAPENTIN
     Dosage: 900 MILLIGRAM, QD
     Route: 048
     Dates: start: 20160913
  18. GLYCEROL [Concomitant]
     Active Substance: GLYCERIN
     Indication: CONSTIPATION
     Dosage: 4 GRAM
     Route: 054
     Dates: start: 20181029, end: 20181030
  19. PARACETAMOL [Concomitant]
     Active Substance: ACETAMINOPHEN
     Dosage: 4 GRAM, QD
     Route: 048
     Dates: start: 20160913
  20. EXEMESTANE. [Suspect]
     Active Substance: EXEMESTANE
     Indication: HER-2 POSITIVE BREAST CANCER
     Dosage: 25 MILLIGRAM, QD
     Route: 048
     Dates: start: 20161122
  21. PACLITAXEL. [Suspect]
     Active Substance: PACLITAXEL
     Dosage: 120 MILLIGRAM
     Route: 042
     Dates: start: 20181108, end: 20190228
  22. OMEPRAZOLE. [Concomitant]
     Active Substance: OMEPRAZOLE
     Indication: PROPHYLAXIS
     Dosage: 40 MILLIGRAM, QD
     Route: 048
     Dates: start: 20160902
  23. CAPECITABINE. [Suspect]
     Active Substance: CAPECITABINE
     Indication: HER-2 POSITIVE BREAST CANCER
     Dosage: 500 MILLIGRAM
     Route: 048
     Dates: start: 20180227, end: 20180731
  24. TRASTUZUMAB. [Suspect]
     Active Substance: TRASTUZUMAB
     Dosage: 600 MILLIGRAM, Q3W
     Route: 058
     Dates: start: 20180718
  25. CALCICHEW D3 FORTE [Concomitant]
     Active Substance: CALCIUM\CHOLECALCIFEROL
     Dosage: 2 UNK, QD
     Route: 048
     Dates: start: 20160917

REACTIONS (5)
  - Diarrhoea [Recovered/Resolved]
  - Vomiting [Recovered/Resolved]
  - Nausea [Not Recovered/Not Resolved]
  - Blood phosphorus decreased [Recovered/Resolved]
  - Decreased appetite [Not Recovered/Not Resolved]

NARRATIVE: CASE EVENT DATE: 201803
